FAERS Safety Report 5758992-4 (Version None)
Quarter: 2008Q2

REPORT INFORMATION
  Report Type: 
  Country: None (occurrence: None)
  Receive Date: 20080602
  Receipt Date: 20080521
  Transmission Date: 20081010
  Serious: Yes (Hospitalization)
  Sender: FDA-Public Use
  Company Number: GXKR2006GB04890

PATIENT
  Age: 67 Year
  Sex: Male

DRUGS (7)
  1. ACETYLSALICYLIC ACID SRT [Suspect]
     Indication: MYOCARDIAL INFARCTION
     Dosage: 300 MG, ORAL
     Route: 048
  2. ENOXAPARIN (NGX) (ENOXAPARIN) UNKNOWN [Suspect]
     Indication: MYOCARDIAL INFARCTION
     Dosage: 70 MG, Q12H, SUBCUTANEOUS
     Route: 058
  3. HEPARIN [Suspect]
     Indication: MYOCARDIAL INFARCTION
     Dosage: 5000 IU; INTRAVENOUS
     Route: 042
  4. TENECTEPLASE (TENECTEPLASE) [Suspect]
     Indication: MYOCARDIAL INFARCTION
     Dosage: 8000 IU, INTRAVENOUS
     Route: 042
  5. NITRATES (NITRATES) [Concomitant]
  6. DOXAZOSIN (DOXAZOSIN) [Concomitant]
  7. LOSARTAN POTASSIUM [Concomitant]

REACTIONS (6)
  - ABDOMINAL PAIN UPPER [None]
  - CHEST PAIN [None]
  - DYSPHAGIA [None]
  - HAEMATEMESIS [None]
  - ODYNOPHAGIA [None]
  - OESOPHAGEAL HAEMORRHAGE [None]
